FAERS Safety Report 8814023 (Version 1)
Quarter: 2012Q4

REPORT INFORMATION
  Report Type: Spontaneous
  Country: JP (occurrence: None)
  Receive Date: 20120925
  Receipt Date: 20120925
  Transmission Date: 20130627
  Serious: Yes (Death, Life-Threatening)
  Sender: FDA-Public Use
  Company Number: ENT-2012-0125

PATIENT
  Age: 64 Year
  Sex: Female

DRUGS (3)
  1. COMTAN [Suspect]
     Indication: PARKINSON^S DISEASE
     Dates: end: 20120727
  2. COMTAN [Suspect]
     Indication: PARKINSON^S DISEASE
     Route: 048
  3. TRERIEF [Concomitant]

REACTIONS (6)
  - Drug-induced liver injury [None]
  - Hepatitis fulminant [None]
  - Disseminated intravascular coagulation [None]
  - Neuroleptic malignant syndrome [None]
  - General physical health deterioration [None]
  - Depressed level of consciousness [None]
